FAERS Safety Report 12603840 (Version 1)
Quarter: 2016Q3

REPORT INFORMATION
  Report Type: Spontaneous
  Country: DE (occurrence: DE)
  Receive Date: 20160728
  Receipt Date: 20160728
  Transmission Date: 20161109
  Serious: Yes (Congenital Anomaly, Other)
  Sender: FDA-Public Use
  Company Number: GXKR2016DE003586

PATIENT

DRUGS (14)
  1. METHYLDOPA. [Concomitant]
     Active Substance: METHYLDOPA
     Indication: HYPERTENSION
     Dosage: 250 [MG/D ]
     Route: 064
  2. INSULIN HUMAN [Concomitant]
     Active Substance: INSULIN HUMAN
     Indication: GESTATIONAL DIABETES
     Route: 064
  3. ELONTRIL [Concomitant]
     Active Substance: BUPROPION HYDROCHLORIDE
     Indication: DEPRESSION
     Dosage: 150 MG FOUR TIMES
     Route: 064
  4. SALBUTAMOL [Concomitant]
     Active Substance: ALBUTEROL
     Indication: ASTHMA
     Route: 064
  5. BISOPROLOL [Concomitant]
     Active Substance: BISOPROLOL
     Indication: HYPERTENSION
     Dosage: 5 [MG/D ]
     Route: 064
     Dates: start: 20150706, end: 20160329
  6. ANAFRANIL [Suspect]
     Active Substance: CLOMIPRAMINE HYDROCHLORIDE
     Indication: DEPRESSION
     Dosage: 150 MG, AS REQUIRED (ABOUT EVERY THIRD DAY)
     Route: 064
     Dates: start: 20150706, end: 20160329
  7. ANXUT [Concomitant]
     Indication: DEPRESSION
     Dosage: 10 - 30 MG/D
     Route: 064
  8. SERTRALINE [Concomitant]
     Active Substance: SERTRALINE HYDROCHLORIDE
     Indication: DEPRESSION
     Dosage: 50 MG, PRN
     Route: 064
  9. AMISULPRIDE [Suspect]
     Active Substance: AMISULPRIDE
     Indication: DEPRESSION
     Dosage: 100 - 300 MG/D
     Route: 064
     Dates: start: 20150706, end: 20160329
  10. TREVILOR RETARD [Suspect]
     Active Substance: VENLAFAXINE HYDROCHLORIDE
     Indication: DEPRESSION
     Dosage: 300 MG/D, REDUCED TO 150 MG/D
     Route: 064
     Dates: start: 20150706, end: 20160329
  11. FOLSAEURE [Concomitant]
     Active Substance: FOLIC ACID
     Indication: PROPHYLAXIS OF NEURAL TUBE DEFECT
     Dosage: 0.4 [MG/D ]
     Route: 064
     Dates: start: 20150706, end: 20160329
  12. CITALOPRAM [Concomitant]
     Active Substance: CITALOPRAM HYDROBROMIDE
     Indication: DEPRESSION
     Dosage: 20 [MG/D ]
     Route: 064
  13. INUVAIR [Concomitant]
     Active Substance: BECLOMETHASONE DIPROPIONATE\FORMOTEROL FUMARATE
     Indication: ASTHMA
     Route: 064
  14. MIRTAZAPINE. [Suspect]
     Active Substance: MIRTAZAPINE
     Indication: DEPRESSION
     Dosage: 30 - 60 MG / D
     Route: 064
     Dates: start: 20150706, end: 20160329

REACTIONS (6)
  - Patent ductus arteriosus [Unknown]
  - Drug withdrawal syndrome neonatal [Recovered/Resolved]
  - Persistent foetal circulation [Recovered/Resolved]
  - Congenital inguinal hernia [Recovered/Resolved with Sequelae]
  - Neonatal respiratory failure [Recovered/Resolved]
  - Cryptorchism [Recovered/Resolved]

NARRATIVE: CASE EVENT DATE: 20160329
